FAERS Safety Report 9960892 (Version 1)
Quarter: 2014Q1

REPORT INFORMATION
  Report Type: Spontaneous
  Country: NL (occurrence: None)
  Receive Date: 20140228
  Receipt Date: 20140228
  Transmission Date: 20141002
  Serious: Yes (Other)
  Sender: FDA-Public Use
  Company Number: AG-2013-014088

PATIENT
  Age: 22 Year
  Sex: Female

DRUGS (1)
  1. THIOGUANINE [Suspect]
     Indication: COLITIS ULCERATIVE

REACTIONS (2)
  - Gastrointestinal disorder [None]
  - Treatment failure [None]
